FAERS Safety Report 22371042 (Version 1)
Quarter: 2023Q2

REPORT INFORMATION
  Report Type: Spontaneous
  Country: US (occurrence: US)
  Receive Date: 20230526
  Receipt Date: 20230526
  Transmission Date: 20230722
  Serious: No
  Sender: FDA-Public Use
  Company Number: US-SA-SAC20230525000981

PATIENT
  Sex: Male
  Weight: 74.8 kg

DRUGS (16)
  1. DUPIXENT [Suspect]
     Active Substance: DUPILUMAB
     Indication: Dermatitis atopic
     Dosage: 300 MG, QOW
     Route: 058
     Dates: start: 20220321
  2. MAGNESIUM [Concomitant]
     Active Substance: MAGNESIUM
  3. CETIRIZINE [Concomitant]
     Active Substance: CETIRIZINE HYDROCHLORIDE
  4. CLOBETASOL PROPIONATE [Concomitant]
     Active Substance: CLOBETASOL PROPIONATE
  5. VITAMIN D3 [Concomitant]
     Active Substance: CHOLECALCIFEROL
  6. TAFLUPROST [Concomitant]
     Active Substance: TAFLUPROST
  7. ELIQUIS [Concomitant]
     Active Substance: APIXABAN
  8. OMEPRAZOLE [Concomitant]
     Active Substance: OMEPRAZOLE
  9. BRIMONIDINE TARTRATE [Concomitant]
     Active Substance: BRIMONIDINE TARTRATE
  10. TESTOSTERONE [Concomitant]
     Active Substance: TESTOSTERONE
  11. OFLOXACIN [Concomitant]
     Active Substance: OFLOXACIN
  12. KETOROLAC TROMETHAMINE [Concomitant]
     Active Substance: KETOROLAC TROMETHAMINE
  13. PREDNISOLONE ACETATE [Concomitant]
     Active Substance: PREDNISOLONE ACETATE
  14. HYDROCORTISONE [Concomitant]
     Active Substance: HYDROCORTISONE
  15. KETOCONAZOLE [Concomitant]
     Active Substance: KETOCONAZOLE
  16. ALBUTEROL SULFATE [Concomitant]
     Active Substance: ALBUTEROL SULFATE

REACTIONS (1)
  - Dry eye [Unknown]
